FAERS Safety Report 19163853 (Version 1)
Quarter: 2021Q2

REPORT INFORMATION
  Report Type: Spontaneous
  Country: US (occurrence: US)
  Receive Date: 20210420
  Receipt Date: 20210420
  Transmission Date: 20210717
  Serious: No
  Sender: FDA-Public Use
  Company Number: None

PATIENT
  Age: 40 Year
  Sex: Male
  Weight: 85 kg

DRUGS (2)
  1. SULFAMETHOXAZOLE/TRIMETHOPRIM (SULFAMETHIZOLE/TRIMETHOPRIM 160MG TAB) [Suspect]
     Active Substance: SULFAMETHOXAZOLE\TRIMETHOPRIM
     Indication: SUBCUTANEOUS ABSCESS
     Route: 048
     Dates: start: 20210114, end: 20210123
  2. CEPHALEXIN (CEPHALEXIN 500MG CAP) [Suspect]
     Active Substance: CEPHALEXIN
     Indication: SUBCUTANEOUS ABSCESS
     Route: 048
     Dates: start: 20210114, end: 20210123

REACTIONS (1)
  - Rash [None]

NARRATIVE: CASE EVENT DATE: 20210123
